FAERS Safety Report 6377818-1 (Version None)
Quarter: 2009Q3

REPORT INFORMATION
  Report Type: 
  Country: None (occurrence: None)
  Receive Date: 20090925
  Receipt Date: 20090916
  Transmission Date: 20100115
  Serious: Yes (Other)
  Sender: FDA-Public Use
  Company Number: IE-ELI_LILLY_AND_COMPANY-IE200909003927

PATIENT
  Age: 67 Year
  Sex: Male

DRUGS (1)
  1. BYETTA [Suspect]
     Dates: start: 20080501

REACTIONS (1)
  - PITUITARY TUMOUR [None]
